FAERS Safety Report 5678210-5 (Version None)
Quarter: 2008Q1

REPORT INFORMATION
  Report Type: 
  Country: None (occurrence: None)
  Receive Date: 20080324
  Receipt Date: 20080324
  Transmission Date: 20080703
  Serious: Yes (Hospitalization)
  Sender: FDA-Public Use
  Company Number: None

PATIENT
  Age: 60 Year
  Sex: Male
  Weight: 74.8435 kg

DRUGS (1)
  1. AMLODIPINE BESYLATE [Suspect]
     Indication: BLOOD PRESSURE FLUCTUATION
     Dosage: 1 TABLET  DAILY  PO
     Route: 048
     Dates: start: 20071203, end: 20071214

REACTIONS (1)
  - HEPATIC FAILURE [None]
